FAERS Safety Report 7982761-8 (Version None)
Quarter: 2011Q4

REPORT INFORMATION
  Report Type: 
  Country: None (occurrence: None)
  Receive Date: 20111215
  Receipt Date: 20111209
  Transmission Date: 20120403
  Serious: Yes (Disabling)
  Sender: FDA-Public Use
  Company Number: GB-PFIZER INC-2011301746

PATIENT
  Age: 35 Year
  Sex: Male

DRUGS (1)
  1. VARENICLINE TARTRATE [Suspect]
     Indication: SMOKING CESSATION THERAPY
     Dosage: UNK
     Route: 048
     Dates: start: 20081103, end: 20090202

REACTIONS (4)
  - ANXIETY [None]
  - AGGRESSION [None]
  - MOOD SWINGS [None]
  - PERSONALITY CHANGE [None]
